FAERS Safety Report 24594549 (Version 1)
Quarter: 2024Q4

REPORT INFORMATION
  Report Type: Spontaneous
  Country: CA (occurrence: CA)
  Receive Date: 20241108
  Receipt Date: 20241108
  Transmission Date: 20250115
  Serious: Yes (Other)
  Sender: B BRAUN
  Company Number: CA-B.Braun Medical Inc.-2164728

PATIENT

DRUGS (2)
  1. HEPARIN SODIUM [Suspect]
     Active Substance: HEPARIN SODIUM
  2. RIVAROXABAN [Concomitant]
     Active Substance: RIVAROXABAN

REACTIONS (6)
  - Abdominal pain [Recovered/Resolved]
  - Heparin-induced thrombocytopenia [Recovered/Resolved]
  - Deep vein thrombosis [Recovered/Resolved]
  - Adrenal thrombosis [Recovered/Resolved]
  - Adrenal haemorrhage [Recovered/Resolved]
  - Adrenal disorder [Recovered/Resolved]
